FAERS Safety Report 17145310 (Version 3)
Quarter: 2022Q1

REPORT INFORMATION
  Report Type: Report from Study
  Country: ES (occurrence: ES)
  Receive Date: 20191212
  Receipt Date: 20220112
  Transmission Date: 20220423
  Serious: Yes (Other)
  Sender: FDA-Public Use
  Company Number: ES-MYLANLABS-2019M1122961

PATIENT
  Age: 7 Decade

DRUGS (9)
  1. DEXAMETHASONE [Suspect]
     Active Substance: DEXAMETHASONE
     Indication: Plasma cell myeloma
     Dosage: 40 MILLIGRAM, QW, COMPLETED SIX CYCLES OF INDUCTION PHASE AND TWO CYCLES OF....
     Route: 065
  2. DEXAMETHASONE [Suspect]
     Active Substance: DEXAMETHASONE
     Dosage: TWO CYCLES IN CONSOLIDATION PHASE (DOSAGE NOT STATED)
     Route: 065
  3. DEXAMETHASONE [Suspect]
     Active Substance: DEXAMETHASONE
     Dosage: 20 MILLIGRAM, QW (MAINTENANCE TREATMENT SCHEDULED FOR UP TO 2 YEARS)
     Route: 065
  4. LENALIDOMIDE [Suspect]
     Active Substance: LENALIDOMIDE
     Indication: Plasma cell myeloma
     Dosage: 25 MILLIGRAM (ON DAYS 1-21 IN A FOUR-WEEK CYCLE; COMPLETED SIX CYCLES OF INDUCTION PHASE)
     Route: 065
  5. LENALIDOMIDE [Suspect]
     Active Substance: LENALIDOMIDE
     Dosage: UNK, CYCLE [TWO CYCLES IN CONSOLIDATION PHASE (DOSAGE NOT STATED)]
     Route: 065
  6. LENALIDOMIDE [Suspect]
     Active Substance: LENALIDOMIDE
     Dosage: 10 MILLIGRAM, FREQUENCY NOT STATED; MAINTENANCE TREATMENT SCHEDULED FOR UP TO 2 YEARS
     Route: 065
  7. MELPHALAN [Suspect]
     Active Substance: MELPHALAN
     Indication: Bone marrow conditioning regimen
     Dosage: 200 MILLIGRAM/SQ. METER
     Route: 065
  8. CARFILZOMIB [Suspect]
     Active Substance: CARFILZOMIB
     Indication: Plasma cell myeloma
     Dosage: 36 MILLIGRAM/SQ. METER, COMPLETED SIX CYCLES OF INDUCTION PHASE (FOUR-WEEK CYCLE)
     Route: 065
  9. CARFILZOMIB [Suspect]
     Active Substance: CARFILZOMIB
     Dosage: TWO CYCLES IN CONSOLIDATION PHASE (DOSAGE NOT STATED)
     Route: 065

REACTIONS (1)
  - Thrombocytopenia [Unknown]
